FAERS Safety Report 6877037-6 (Version None)
Quarter: 2010Q3

REPORT INFORMATION
  Report Type: 
  Country: None (occurrence: None)
  Receive Date: 20100727
  Receipt Date: 20100716
  Transmission Date: 20110219
  Serious: Yes (Hospitalization, Other)
  Sender: FDA-Public Use
  Company Number: US-NICOBRDEV-2010-09452

PATIENT
  Sex: Female
  Weight: 109 kg

DRUGS (2)
  1. OXYTROL [Suspect]
     Indication: HYPERTONIC BLADDER
     Dosage: 1 PATCH EVERY 4 DAYS
     Route: 062
  2. OXYTROL [Suspect]
     Indication: INVESTIGATION

REACTIONS (4)
  - ASTHENIA [None]
  - CONFUSIONAL STATE [None]
  - SINUSITIS [None]
  - URINARY TRACT INFECTION [None]
